FAERS Safety Report 5517965-7 (Version None)
Quarter: 2007Q4

REPORT INFORMATION
  Report Type: 
  Country: None (occurrence: None)
  Receive Date: 20071115
  Receipt Date: 20071107
  Transmission Date: 20080405
  Serious: Yes (Hospitalization)
  Sender: FDA-Public Use
  Company Number: PHBS2007BE18775

PATIENT
  Age: 85 Year
  Sex: Male

DRUGS (5)
  1. EXFORGE [Suspect]
     Indication: HYPERTENSION
     Dosage: 160/5 MG, QD
     Route: 048
     Dates: start: 20071024, end: 20071031
  2. ANTICOAGULANTS [Concomitant]
  3. TENORMIN [Concomitant]
  4. LASIX [Concomitant]
  5. ATACAND [Concomitant]

REACTIONS (3)
  - DIVERTICULUM INTESTINAL HAEMORRHAGIC [None]
  - GENERAL PHYSICAL CONDITION ABNORMAL [None]
  - OEDEMA PERIPHERAL [None]
